FAERS Safety Report 8001657-9 (Version None)
Quarter: 2011Q4

REPORT INFORMATION
  Report Type: 
  Country: None (occurrence: None)
  Receive Date: 20111222
  Receipt Date: 20111214
  Transmission Date: 20120403
  Serious: Yes (Hospitalization, Other)
  Sender: FDA-Public Use
  Company Number: JP-BAYER-2011-120319

PATIENT
  Age: 39 Year
  Sex: Female

DRUGS (9)
  1. CLINDAMYCIN [Concomitant]
     Indication: OVARIAN ABSCESS
     Dosage: UNK
     Route: 065
  2. CIPROFLOXACIN HCL [Suspect]
     Indication: OVARIAN ABSCESS
     Dosage: UNK
     Route: 041
  3. LINEZOLID [Concomitant]
     Indication: OVARIAN ABSCESS
     Dosage: UNK
     Route: 065
  4. VANCOMYCIN HYCHLORIDE [Concomitant]
     Indication: OVARIAN ABSCESS
     Dosage: UNK
     Route: 065
  5. PREDNISOLONE [Concomitant]
     Indication: MIXED CONNECTIVE TISSUE DISEASE
     Dosage: DAILY DOSE 5 MG
     Route: 048
  6. AMPICILLIN AND SULBACTAM [Concomitant]
     Indication: OVARIAN ABSCESS
     Dosage: UNK
     Route: 042
  7. MEROPENEM [Concomitant]
     Indication: OVARIAN ABSCESS
     Dosage: UNK
     Route: 042
  8. ERYTHROCIN LACTOBIONATE [Concomitant]
     Indication: OVARIAN ABSCESS
     Dosage: UNK
     Route: 065
  9. TAZOBACTAM SODIUM/PIPERACILLIN SODIUM [Concomitant]
     Indication: OVARIAN ABSCESS
     Dosage: UNK
     Route: 042

REACTIONS (3)
  - INFECTIOUS PERITONITIS [None]
  - RECTAL PERFORATION [None]
  - SHOCK [None]
